FAERS Safety Report 25460809 (Version 2)
Quarter: 2025Q3

REPORT INFORMATION
  Report Type: Report from Study
  Country: MX (occurrence: MX)
  Receive Date: 20250620
  Receipt Date: 20250708
  Transmission Date: 20251021
  Serious: Yes (Other)
  Sender: NOVARTIS
  Company Number: MX-002147023-NVSC2025MX098086

PATIENT
  Age: 52 Year
  Sex: Male

DRUGS (18)
  1. AFINITOR [Suspect]
     Active Substance: EVEROLIMUS
     Indication: Renal cancer
     Dosage: 2 DOSAGE FORM, QD (2 X 5MG :10 MG)
     Route: 048
     Dates: start: 202504
  2. AFINITOR [Suspect]
     Active Substance: EVEROLIMUS
     Indication: Clear cell renal cell carcinoma
     Dosage: UNK (1 OF 5MG TOGETHER WITH 1 OF 2.5MG / 7.5 MG), OTHER (DAILY ALL AT ONCE/ AT NIGHT), QD
     Route: 065
  3. AFINITOR [Suspect]
     Active Substance: EVEROLIMUS
     Dosage: UNK (1 DF OF 2.5 MG AND 1 DF OF 5 MG), QD
     Route: 048
  4. RUXOLITINIB [Suspect]
     Active Substance: RUXOLITINIB
     Indication: Product used for unknown indication
     Route: 065
  5. CABOZANTINIB [Concomitant]
     Active Substance: CABOZANTINIB
     Indication: Renal cancer
     Dosage: 1 DOSAGE FORM (40MG) (TABLET), QD
     Route: 048
     Dates: start: 202412, end: 202504
  6. ONDANSETRON [Concomitant]
     Active Substance: ONDANSETRON
     Indication: Renal cancer
     Route: 048
     Dates: start: 2024
  7. ONDANSETRON [Concomitant]
     Active Substance: ONDANSETRON
     Indication: Nausea
  8. VITAMIN D [Concomitant]
     Active Substance: VITAMIN D NOS
     Indication: Fatigue
     Dosage: 1 DOSAGE FORM (1 OF 4000IU) (DISPERSIBLE TABLET)
     Route: 048
     Dates: start: 2020
  9. ACETAMINOPHEN [Concomitant]
     Active Substance: ACETAMINOPHEN
     Indication: Pain
     Dosage: 1 DOSAGE FORM (OF 750MG) (TABLET), Q8H
     Route: 065
  10. PREGABALIN [Concomitant]
     Active Substance: PREGABALIN
     Indication: Pain
     Dosage: 1 DOSAGE FORM (OF 75 MG) (TABLET), QD
     Route: 065
  11. PREGABALIN [Concomitant]
     Active Substance: PREGABALIN
     Dosage: UNK (1) (TABLET), Q12H
     Route: 065
  12. LEVOTHYROXINE [Concomitant]
     Active Substance: LEVOTHYROXINE
     Indication: Hypothyroidism
     Route: 065
  13. Cetaphil [Concomitant]
     Indication: Product used for unknown indication
     Dosage: UNK (1) (CREAM), Q12H
     Route: 065
  14. Kodel [Concomitant]
     Indication: Cough
     Dosage: 20 ML (OF 160/200 MG) (SYRUP) (FOR 2 MONTHS), Q12H
     Route: 065
  15. Libonide [Concomitant]
     Indication: Product used for unknown indication
     Dosage: UNK (AMPOULE) (EVERY 12 HOURS 1 ML OF LIBONIDE + 1 ML OF PHYSIOLOGY SOLUTION 0.9%), Q12H
     Route: 065
  16. FEXOFENADINE [Concomitant]
     Active Substance: FEXOFENADINE HYDROCHLORIDE
     Indication: Hypersensitivity
     Dosage: 1 DOSAGE FORM (1 OF 120 MG) (TABLET), QD
     Route: 065
  17. XGEVA [Concomitant]
     Active Substance: DENOSUMAB
     Indication: Rib fracture
     Dosage: 1 DOSAGE FORM (1 OF 120MG) (AMPOULE), 28D
     Route: 058
  18. PREDNISONE [Concomitant]
     Active Substance: PREDNISONE
     Indication: Brain oedema
     Dosage: 1.5 DOSAGE FORM (OF 50 MG) (TABLET), BID (1 IN THE  MORNING AND HALF IN THE AFTERNOON)
     Route: 065

REACTIONS (12)
  - Seizure [Unknown]
  - Gastrointestinal toxicity [Unknown]
  - Diarrhoea [Unknown]
  - Diabetes mellitus [Unknown]
  - Mouth ulceration [Unknown]
  - Oral discomfort [Unknown]
  - Pharyngeal ulceration [Unknown]
  - Throat irritation [Unknown]
  - Hunger [Unknown]
  - Sleep disorder [Unknown]
  - Mucosal inflammation [Unknown]
  - Off label use [Unknown]

NARRATIVE: CASE EVENT DATE: 20250401
